FAERS Safety Report 5262553-3 (Version None)
Quarter: 2007Q1

REPORT INFORMATION
  Report Type: 
  Country: None (occurrence: None)
  Receive Date: 20070312
  Receipt Date: 20070228
  Transmission Date: 20070707
  Serious: Yes (Other)
  Sender: FDA-Public Use
  Company Number: PHBS2007BE02610

PATIENT
  Age: 75 Year
  Sex: Female

DRUGS (1)
  1. ZOMETA [Suspect]
     Indication: MULTIPLE MYELOMA
     Dosage: 4 MG MONTHLY
     Dates: start: 20050901, end: 20060701

REACTIONS (1)
  - OSTEONECROSIS [None]
